FAERS Safety Report 8040276-5 (Version None)
Quarter: 2012Q1

REPORT INFORMATION
  Report Type: 
  Country: None (occurrence: None)
  Receive Date: 20120111
  Receipt Date: 20111228
  Transmission Date: 20120608
  Serious: Yes (Other)
  Sender: FDA-Public Use
  Company Number: US-AMGEN-USASP2011047665

PATIENT
  Age: 46 Year
  Sex: Male
  Weight: 60.771 kg

DRUGS (4)
  1. OXYCODONE HCL [Concomitant]
     Dosage: UNK
     Dates: start: 20110425
  2. ENBREL [Suspect]
     Indication: PSORIATIC ARTHROPATHY
     Dosage: 50 MG, QWK
     Dates: start: 20020101, end: 20040101
  3. ENBREL [Suspect]
     Dosage: 50 MG, QWK
     Dates: start: 20110601
  4. MULTIVITAMIN                       /00097801/ [Concomitant]

REACTIONS (2)
  - HEPATITIS C [None]
  - INJECTION SITE PAIN [None]
